FAERS Safety Report 11677061 (Version 2)
Quarter: 2015Q4

REPORT INFORMATION
  Report Type: Spontaneous
  Country: US (occurrence: US)
  Receive Date: 20151027
  Receipt Date: 20151104
  Transmission Date: 20160304
  Serious: No
  Sender: FDA-Public Use
  Company Number: US-ELI_LILLY_AND_COMPANY-US201008002494

PATIENT
  Age: 69 Year
  Sex: Female

DRUGS (1)
  1. FORTEO [Suspect]
     Active Substance: TERIPARATIDE
     Indication: OSTEOPOROSIS
     Dosage: UNK, UNKNOWN
     Route: 065

REACTIONS (8)
  - Gastroenteritis viral [Unknown]
  - Vitamin D decreased [Recovered/Resolved]
  - Visual impairment [Unknown]
  - Muscle spasms [Recovered/Resolved]
  - Weight increased [Unknown]
  - Dizziness [Recovered/Resolved]
  - Cataract [Unknown]
  - Malaise [Unknown]

NARRATIVE: CASE EVENT DATE: 201006
